FAERS Safety Report 17623587 (Version 1)
Quarter: 2020Q2

REPORT INFORMATION
  Report Type: Spontaneous
  Country: CN (occurrence: CN)
  Receive Date: 20200403
  Receipt Date: 20200403
  Transmission Date: 20200713
  Serious: Yes (Death, Other)
  Sender: FDA-Public Use
  Company Number: CN-BAUSCH-BL-2020-008983

PATIENT
  Age: 65 Year
  Sex: Female

DRUGS (10)
  1. VINCRISTINE [Suspect]
     Active Substance: VINCRISTINE
     Dosage: LOW DOSE
     Route: 065
  2. VINCRISTINE [Suspect]
     Active Substance: VINCRISTINE
     Indication: PLASMA CELL MYELOMA
     Dosage: 4 CYCLES
     Route: 065
  3. EPIRUBICIN [Suspect]
     Active Substance: EPIRUBICIN
     Indication: PLASMA CELL MYELOMA
     Dosage: 4 CYCLES
     Route: 065
  4. BORTEZOMIB. [Suspect]
     Active Substance: BORTEZOMIB
     Dosage: LOW DOSE
     Route: 065
  5. THALIDOMIDE [Suspect]
     Active Substance: THALIDOMIDE
     Indication: PLASMA CELL MYELOMA RECURRENT
     Dosage: 1 CYCLE AND CONTINUED
     Route: 065
  6. DEXAMETHASONE. [Suspect]
     Active Substance: DEXAMETHASONE
     Indication: PLASMA CELL MYELOMA
     Dosage: 4 CYCLES
     Route: 065
  7. DEXAMETHASONE. [Suspect]
     Active Substance: DEXAMETHASONE
     Dosage: 1 CYCLE
     Route: 065
  8. BORTEZOMIB. [Suspect]
     Active Substance: BORTEZOMIB
     Indication: PLASMA CELL MYELOMA RECURRENT
     Route: 065
  9. DEXAMETHASONE. [Suspect]
     Active Substance: DEXAMETHASONE
     Dosage: LOW DOSE
     Route: 065
  10. EPIRUBICIN [Suspect]
     Active Substance: EPIRUBICIN
     Dosage: LOW-DOSE
     Route: 065

REACTIONS (2)
  - Plasma cell myeloma recurrent [Fatal]
  - Therapy partial responder [Unknown]
